FAERS Safety Report 13376137 (Version 2)
Quarter: 2017Q2

REPORT INFORMATION
  Report Type: Spontaneous
  Country: IT (occurrence: IT)
  Receive Date: 20170328
  Receipt Date: 20170406
  Transmission Date: 20170830
  Serious: Yes (Other)
  Sender: FDA-Public Use
  Company Number: IT-ACCORD-049499

PATIENT
  Age: 52 Year
  Sex: Female
  Weight: 50 kg

DRUGS (4)
  1. GUTRON [Concomitant]
     Active Substance: MIDODRINE
  2. LEVOFOLINIC ACID [Concomitant]
     Active Substance: LEVOLEUCOVORIN
     Dosage: 295 MG
     Dates: start: 20160728, end: 20170119
  3. FLUOROURACIL. [Suspect]
     Active Substance: FLUOROURACIL
     Indication: ADENOCARCINOMA OF COLON
     Dosage: ALSO RECEIVED INTRAVENOUS DRIP AT THE DOSE OF 3550 MG
     Route: 040
     Dates: start: 20160728
  4. OXALIPLATIN. [Suspect]
     Active Substance: OXALIPLATIN
     Indication: ADENOCARCINOMA OF COLON
     Route: 042
     Dates: start: 20160728

REACTIONS (4)
  - Infusion related reaction [Recovering/Resolving]
  - Pruritus generalised [Recovering/Resolving]
  - Hypertransaminasaemia [Recovering/Resolving]
  - Retching [Recovering/Resolving]

NARRATIVE: CASE EVENT DATE: 20161003
